FAERS Safety Report 7213310-X (Version None)
Quarter: 2010Q4

REPORT INFORMATION
  Report Type: 
  Country: None (occurrence: None)
  Receive Date: 20101229
  Receipt Date: 20101213
  Transmission Date: 20110411
  Serious: Yes (Hospitalization)
  Sender: FDA-Public Use
  Company Number: DSA_44576_2010

PATIENT
  Age: 55 Year
  Sex: Male

DRUGS (13)
  1. DILTIAZEM HYDROCHLORIDE [Suspect]
     Indication: HYPERTENSION
     Dosage: (15 MG Q1H ORAL)
     Route: 048
  2. FENTANYL CITRATE [Suspect]
     Indication: PRODUCT USED FOR UNKNOWN INDICATION
     Dosage: (25 ?G Q1H ORAL), (350 ?G Q1H ORAL)
     Route: 048
  3. PROPOFOL [Suspect]
     Indication: PRODUCT USED FOR UNKNOWN INDICATION
     Dosage: (20 MG Q1H)
  4. CHLORPROMAZINE [Concomitant]
  5. DIGOXIN [Concomitant]
  6. DOCUSATE [Concomitant]
  7. FUROSEMIDE [Concomitant]
  8. HEPARIN [Concomitant]
  9. IPRATROPIUM BROMIDE [Concomitant]
  10. LEVALBUTEROL HYDROCHLORIDE [Concomitant]
  11. METOPROLOL TARTRATE [Concomitant]
  12. TAZOBACTAM [Concomitant]
  13. TOBRAMYCIN [Concomitant]

REACTIONS (17)
  - ABDOMINAL PAIN [None]
  - ASCITES [None]
  - BACK PAIN [None]
  - BLOOD PRESSURE INCREASED [None]
  - CHEST PAIN [None]
  - CONFUSIONAL STATE [None]
  - CONVULSION [None]
  - DELIRIUM [None]
  - DRUG INTERACTION [None]
  - MYOCLONUS [None]
  - NEPHROLITHIASIS [None]
  - NEUROTOXICITY [None]
  - OBSTRUCTIVE UROPATHY [None]
  - POLYNEUROPATHY [None]
  - RALES [None]
  - RESPIRATORY RATE INCREASED [None]
  - URAEMIC ENCEPHALOPATHY [None]
